FAERS Safety Report 6144917-9 (Version None)
Quarter: 2009Q2

REPORT INFORMATION
  Report Type: 
  Country: None (occurrence: None)
  Receive Date: 20090406
  Receipt Date: 20090320
  Transmission Date: 20091009
  Serious: Yes (Other)
  Sender: FDA-Public Use
  Company Number: US-MERCK-0903USA01059

PATIENT

DRUGS (2)
  1. CANCIDAS [Suspect]
     Indication: SYSTEMIC CANDIDA
     Route: 041
  2. CANCIDAS [Suspect]
     Route: 041

REACTIONS (1)
  - ADVERSE EVENT [None]
